FAERS Safety Report 18404022 (Version 1)
Quarter: 2020Q4

REPORT INFORMATION
  Report Type: Spontaneous
  Country: PL (occurrence: PL)
  Receive Date: 20201020
  Receipt Date: 20201020
  Transmission Date: 20210114
  Serious: Yes (Life-Threatening)
  Sender: FDA-Public Use
  Company Number: PL-TEVA-2020-PL-1839203

PATIENT
  Age: 54 Year
  Sex: Male
  Weight: 75 kg

DRUGS (3)
  1. VIVACE [RAMIPRIL] [Suspect]
     Active Substance: RAMIPRIL
     Dosage: DOSE: 30 TABLETS, THERAPY START DATE AND END DATE : NOT ASKED
     Route: 048
  2. BISOCARD 10 MG [Suspect]
     Active Substance: BISOPROLOL FUMARATE
     Dosage: DOSE: 30 TABLETS, THERAPY START DATE AND END DATE : NOT ASKED
     Route: 048
  3. AMLOZEK 10 MG [Suspect]
     Active Substance: AMLODIPINE BESYLATE
     Dosage: DOSE: 30 TABLETS,THERAPY START DATE AND END DATE : NOT ASKED
     Route: 048

REACTIONS (1)
  - Toxicity to various agents [Recovering/Resolving]
